FAERS Safety Report 19650825 (Version 3)
Quarter: 2021Q3

REPORT INFORMATION
  Report Type: Spontaneous
  Country: AR (occurrence: AR)
  Receive Date: 20210802
  Receipt Date: 20210906
  Transmission Date: 20211014
  Serious: Yes (Other)
  Sender: FDA-Public Use
  Company Number: AR-AMGEN-ARGSP2021117527

PATIENT
  Age: 65 Year
  Sex: Male

DRUGS (1)
  1. ENBREL [Suspect]
     Active Substance: ETANERCEPT
     Indication: RHEUMATOID ARTHRITIS
     Dosage: 50 MG, WEEKLY
     Route: 065
     Dates: start: 20180523, end: 20190920

REACTIONS (7)
  - Visual impairment [Not Recovered/Not Resolved]
  - Road traffic accident [Not Recovered/Not Resolved]
  - Bone pain [Not Recovered/Not Resolved]
  - Rheumatoid arthritis [Not Recovered/Not Resolved]
  - Limb injury [Not Recovered/Not Resolved]
  - Gait inability [Unknown]
  - Blindness unilateral [Not Recovered/Not Resolved]
